FAERS Safety Report 12921234 (Version 1)
Quarter: 2016Q4

REPORT INFORMATION
  Report Type: Spontaneous
  Country: US (occurrence: US)
  Receive Date: 20161107
  Receipt Date: 20161107
  Transmission Date: 20170207
  Serious: No
  Sender: FDA-Public Use
  Company Number: US-ELI_LILLY_AND_COMPANY-US201611000224

PATIENT
  Age: 64 Year
  Sex: Female

DRUGS (4)
  1. TRULICITY [Suspect]
     Active Substance: DULAGLUTIDE
     Dosage: 0.75 MG, UNKNOWN
     Route: 065
  2. HUMALOG [Concomitant]
     Active Substance: INSULIN LISPRO
     Dosage: 25 IU, TID
     Route: 058
     Dates: start: 2016
  3. TRULICITY [Suspect]
     Active Substance: DULAGLUTIDE
     Indication: TYPE 2 DIABETES MELLITUS
     Dosage: 0.75 MG, UNKNOWN
     Route: 065
     Dates: start: 201609
  4. TOUJEO [Concomitant]
     Active Substance: INSULIN GLARGINE
     Dosage: 70 IU, QD
     Route: 065

REACTIONS (9)
  - Dyspepsia [Unknown]
  - Drug dose omission [Unknown]
  - Diarrhoea [Unknown]
  - Hyperchlorhydria [Unknown]
  - Eating disorder [Unknown]
  - Flatulence [Unknown]
  - Injection site pain [Unknown]
  - Eructation [Unknown]
  - Blood glucose decreased [Recovered/Resolved]

NARRATIVE: CASE EVENT DATE: 201609
